FAERS Safety Report 24164108 (Version 1)
Quarter: 2024Q3

REPORT INFORMATION
  Report Type: Spontaneous
  Country: DE (occurrence: DE)
  Receive Date: 20240801
  Receipt Date: 20240801
  Transmission Date: 20241017
  Serious: Yes (Death)
  Sender: TEVA
  Company Number: DE-TEVA-VS-3226543

PATIENT
  Age: 53 Year
  Sex: Female

DRUGS (2)
  1. METOCLOPRAMIDE [Suspect]
     Active Substance: METOCLOPRAMIDE
     Indication: Completed suicide
     Route: 048
  2. PENTOBARBITAL [Suspect]
     Active Substance: PENTOBARBITAL
     Indication: Completed suicide
     Route: 048

REACTIONS (4)
  - Toxicity to various agents [Fatal]
  - Intentional product misuse [Fatal]
  - Intentional overdose [Fatal]
  - Completed suicide [Fatal]
